FAERS Safety Report 8927933 (Version 1)
Quarter: 2012Q4

REPORT INFORMATION
  Report Type: Spontaneous
  Country: US (occurrence: None)
  Receive Date: 20121126
  Receipt Date: 20121126
  Transmission Date: 20130627
  Serious: Yes (Other)
  Sender: FDA-Public Use
  Company Number: None

PATIENT
  Age: 19 Year
  Sex: Female
  Weight: 87.32 kg

DRUGS (1)
  1. MINOCYCLINE [Suspect]
     Indication: ACNE
     Dates: start: 20120101, end: 20120328

REACTIONS (9)
  - Pain in extremity [None]
  - Oedema peripheral [None]
  - Arthralgia [None]
  - Arthralgia [None]
  - Pain in extremity [None]
  - Joint swelling [None]
  - Joint swelling [None]
  - Oedema peripheral [None]
  - Lupus-like syndrome [None]
